FAERS Safety Report 6959630-5 (Version None)
Quarter: 2010Q3

REPORT INFORMATION
  Report Type: 
  Country: None (occurrence: None)
  Receive Date: 20100827
  Receipt Date: 20100817
  Transmission Date: 20110219
  Serious: Yes (Death)
  Sender: FDA-Public Use
  Company Number: 2010AP001767

PATIENT
  Age: 47 Year
  Sex: Male

DRUGS (3)
  1. PAROXETINE HCL [Suspect]
     Dosage: 60 MG; QD
  2. CLOZAPINE [Suspect]
     Dosage: 250 MG; BID PO
     Route: 048
     Dates: start: 20050805, end: 20100318
  3. CLOZAPINE [Concomitant]

REACTIONS (4)
  - CIRCULATORY COLLAPSE [None]
  - CORONARY ARTERY DISEASE [None]
  - DRUG LEVEL INCREASED [None]
  - FALL [None]
